FAERS Safety Report 25482680 (Version 1)
Quarter: 2025Q2

REPORT INFORMATION
  Report Type: Other
  Country: JP (occurrence: JP)
  Receive Date: 20250626
  Receipt Date: 20250626
  Transmission Date: 20250717
  Serious: Yes (Other)
  Sender: ESTEVE
  Company Number: JP-Esteve Pharmaceuticals SA-2179432

PATIENT
  Sex: Male
  Weight: 1.197 kg

DRUGS (2)
  1. METOPIRONE [Suspect]
     Active Substance: METYRAPONE
     Indication: Cushing^s syndrome
     Dates: start: 20240412
  2. METOPIRONE [Suspect]
     Active Substance: METYRAPONE
     Dates: start: 20240413, end: 20240427

REACTIONS (2)
  - Ultrasound foetal abnormal [Recovered/Resolved]
  - Foetal heart rate deceleration abnormality [Recovered/Resolved]
